FAERS Safety Report 9154884 (Version 1)
Quarter: 2013Q1

REPORT INFORMATION
  Report Type: Spontaneous
  Country: US (occurrence: None)
  Receive Date: 20130305
  Receipt Date: 20130305
  Transmission Date: 20140127
  Serious: Yes (Hospitalization)
  Sender: FDA-Public Use
  Company Number: None

PATIENT
  Age: 91 Year
  Sex: Female
  Weight: 74.84 kg

DRUGS (1)
  1. PRADAXA 150 MG BOEHRINGER INGELHEIM [Suspect]
     Indication: ANTICOAGULANT THERAPY
     Route: 048
     Dates: start: 20111018, end: 20130228

REACTIONS (2)
  - Renal impairment [None]
  - Upper gastrointestinal haemorrhage [None]
